FAERS Safety Report 24051534 (Version 1)
Quarter: 2024Q3

REPORT INFORMATION
  Report Type: Spontaneous
  Country: JP (occurrence: JP)
  Receive Date: 20240704
  Receipt Date: 20240704
  Transmission Date: 20241016
  Serious: Yes (Death, Other)
  Sender: PFIZER
  Company Number: JP-PFIZER INC-202400205432

PATIENT
  Age: 5 Day
  Weight: 0.491 kg

DRUGS (3)
  1. HYDROCORTISONE [Suspect]
     Active Substance: HYDROCORTISONE\HYDROCORTISONE ACETATE
     Indication: Respiratory disorder
  2. INSULIN NOS [Suspect]
     Active Substance: INSULIN NOS
     Dosage: HIGH DOSE
  3. BETAMETHASONE [Concomitant]
     Active Substance: BETAMETHASONE\BETAMETHASONE DIPROPIONATE
     Indication: Respiratory disorder

REACTIONS (4)
  - Cardiomyopathy neonatal [Fatal]
  - Cardiac hypertrophy [Fatal]
  - Circulatory failure neonatal [Fatal]
  - Off label use [Unknown]
